FAERS Safety Report 8476317-0 (Version None)
Quarter: 2012Q2

REPORT INFORMATION
  Report Type: 
  Country: None (occurrence: None)
  Receive Date: 20120622
  Receipt Date: 20120614
  Transmission Date: 20120825
  Serious: Yes (Life-Threatening, Hospitalization)
  Sender: FDA-Public Use
  Company Number: 2012SP033341

PATIENT
  Sex: Female

DRUGS (2)
  1. NOXAFIL [Suspect]
     Indication: FUNGAL INFECTION
     Dosage: 600 MG;QD;PO
     Route: 048
  2. NOXAFIL [Suspect]
     Indication: PROPHYLAXIS
     Dosage: 600 MG;QD;PO
     Route: 048

REACTIONS (1)
  - FUNGAL INFECTION [None]
